FAERS Safety Report 4895201-2 (Version None)
Quarter: 2006Q1

REPORT INFORMATION
  Report Type: 
  Country: None (occurrence: None)
  Receive Date: 20060125
  Receipt Date: 20050726
  Transmission Date: 20060701
  Serious: Yes (Other)
  Sender: FDA-Public Use
  Company Number: 2005BH001216

PATIENT
  Sex: Female

DRUGS (1)
  1. SUPRANE [Suspect]

REACTIONS (2)
  - HEPATIC ENZYME INCREASED [None]
  - PULMONARY EMBOLISM [None]
